FAERS Safety Report 7287866-5 (Version None)
Quarter: 2011Q1

REPORT INFORMATION
  Report Type: 
  Country: None (occurrence: None)
  Receive Date: 20110211
  Receipt Date: 20110209
  Transmission Date: 20110831
  Serious: No
  Sender: FDA-Public Use
  Company Number: US-PFIZER INC-2009285946

PATIENT
  Sex: Female

DRUGS (1)
  1. LYRICA [Suspect]
     Dosage: UNK

REACTIONS (6)
  - SOMNOLENCE [None]
  - OEDEMA PERIPHERAL [None]
  - VISION BLURRED [None]
  - COUGH [None]
  - MYALGIA [None]
  - VISUAL ACUITY REDUCED [None]
